FAERS Safety Report 4523721-9 (Version None)
Quarter: 2004Q4

REPORT INFORMATION
  Report Type: 
  Country: None (occurrence: None)
  Receive Date: 20041208
  Receipt Date: 20041201
  Transmission Date: 20050328
  Serious: Yes (Hospitalization)
  Sender: FDA-Public Use
  Company Number: 2004UW24570

PATIENT
  Age: 66 Year
  Sex: Female
  Weight: 52.5 kg

DRUGS (7)
  1. IRESSA [Suspect]
     Indication: SQUAMOUS CELL CARCINOMA
     Dosage: 250 MG DAILY PO
     Route: 048
     Dates: start: 20041011, end: 20041102
  2. IRESSA [Suspect]
     Indication: SQUAMOUS CELL CARCINOMA
     Dosage: 250 MG DAILY PO
     Route: 048
     Dates: start: 20041109
  3. CARBOPLATIN [Suspect]
  4. PACLITAXEL [Suspect]
  5. FLUOROURACIL [Suspect]
  6. HYDROXYUREA [Suspect]
  7. RADIATION THERAPY [Suspect]

REACTIONS (2)
  - DEHYDRATION [None]
  - MUCOSAL INFLAMMATION [None]
